FAERS Safety Report 17224603 (Version 4)
Quarter: 2020Q2

REPORT INFORMATION
  Report Type: Spontaneous
  Country: US (occurrence: US)
  Receive Date: 20200102
  Receipt Date: 20200428
  Transmission Date: 20200713
  Serious: Yes (Other)
  Sender: FDA-Public Use
  Company Number: US-PFIZER INC-2019561560

PATIENT
  Age: 82 Year
  Sex: Female
  Weight: 41 kg

DRUGS (2)
  1. PREMARIN [Suspect]
     Active Substance: ESTROGENS, CONJUGATED
     Dosage: UNK [ONLY ONCE A DAY AND ONLY FEW TIMES A WEEK]
  2. PREMARIN [Suspect]
     Active Substance: ESTROGENS, CONJUGATED
     Indication: VULVOVAGINAL DRYNESS
     Dosage: 0.625 MG, UNK
     Route: 067

REACTIONS (7)
  - Condition aggravated [Unknown]
  - Malaise [Unknown]
  - Product dose omission [Not Recovered/Not Resolved]
  - Bedridden [Unknown]
  - Eye infection fungal [Unknown]
  - Vulvovaginal dryness [Not Recovered/Not Resolved]
  - Anaemia [Unknown]

NARRATIVE: CASE EVENT DATE: 201109
